FAERS Safety Report 10494101 (Version 1)
Quarter: 2014Q4

REPORT INFORMATION
  Report Type: Spontaneous
  Country: CA (occurrence: CA)
  Receive Date: 20141003
  Receipt Date: 20141003
  Transmission Date: 20150528
  Serious: Yes (Other)
  Sender: FDA-Public Use
  Company Number: CA-BRISTOL-MYERS SQUIBB COMPANY-21433164

PATIENT

DRUGS (1)
  1. KENALOG-40 [Suspect]
     Active Substance: TRIAMCINOLONE ACETONIDE
     Indication: DIABETIC RETINAL OEDEMA

REACTIONS (1)
  - Eye inflammation [Unknown]
